FAERS Safety Report 5968782-5 (Version None)
Quarter: 2008Q4

REPORT INFORMATION
  Report Type: 
  Country: None (occurrence: None)
  Receive Date: 20081126
  Receipt Date: 20081112
  Transmission Date: 20090506
  Serious: Yes (Other)
  Sender: FDA-Public Use
  Company Number: DE-GENENTECH-272076

PATIENT
  Age: 15 Year
  Sex: Male

DRUGS (1)
  1. MABTHERA [Suspect]
     Indication: EVANS SYNDROME

REACTIONS (1)
  - ACUTE DISSEMINATED ENCEPHALOMYELITIS [None]
